FAERS Safety Report 4285967-7 (Version None)
Quarter: 2004Q1

REPORT INFORMATION
  Report Type: 
  Country: None (occurrence: None)
  Receive Date: 20040203
  Receipt Date: 20040121
  Transmission Date: 20041129
  Serious: Yes (Hospitalization)
  Sender: FDA-Public Use
  Company Number: SE-SHR-03-017440

PATIENT
  Age: 59 Year
  Sex: Female

DRUGS (3)
  1. ULTRAVIST 300 [Suspect]
     Indication: COMPUTERISED TOMOGRAM ABDOMEN
     Dosage: 120 ML, 1 DOSE, INTRAVENOUS
     Route: 042
     Dates: start: 20030819, end: 20030819
  2. ULTRAVIST 300 [Suspect]
  3. OXASCAND (OXAZEPAM) [Concomitant]

REACTIONS (11)
  - ANAPHYLACTIC SHOCK [None]
  - BLOOD PRESSURE DECREASED [None]
  - DEPRESSED LEVEL OF CONSCIOUSNESS [None]
  - DYSPNOEA [None]
  - FACE OEDEMA [None]
  - FLUSHING [None]
  - LOCAL SWELLING [None]
  - OEDEMA PERIPHERAL [None]
  - PULSE ABSENT [None]
  - RASH ERYTHEMATOUS [None]
  - TONGUE OEDEMA [None]
